FAERS Safety Report 8012864-3 (Version None)
Quarter: 2011Q4

REPORT INFORMATION
  Report Type: 
  Country: None (occurrence: None)
  Receive Date: 20111229
  Receipt Date: 20111221
  Transmission Date: 20120403
  Serious: Yes (Hospitalization)
  Sender: FDA-Public Use
  Company Number: DE-BRISTOL-MYERS SQUIBB COMPANY-16131518

PATIENT
  Age: 69 Year
  Sex: Male

DRUGS (1)
  1. SPRYCEL [Suspect]
     Indication: CHRONIC MYELOID LEUKAEMIA
     Dosage: MAR2010-07JUN10:100MG.DOSE REDUCED TO 70MG.FROM 07JUN2010-SEP2011
     Route: 048
     Dates: start: 20100303, end: 20110901

REACTIONS (3)
  - PLEURAL EFFUSION [None]
  - LYMPHADENOPATHY [None]
  - NON-HODGKIN'S LYMPHOMA RECURRENT [None]
